FAERS Safety Report 21904610 (Version 1)
Quarter: 2023Q1

REPORT INFORMATION
  Report Type: Spontaneous
  Country: US (occurrence: None)
  Receive Date: 20230124
  Receipt Date: 20230124
  Transmission Date: 20230418
  Serious: Yes (Hospitalization)
  Sender: FDA-Public Use
  Company Number: None

PATIENT
  Age: 69 Year
  Sex: Male
  Weight: 92.99 kg

DRUGS (4)
  1. CELECOXIB [Suspect]
     Active Substance: CELECOXIB
     Indication: Pain
     Dosage: ONE TAB EVERY DAY PO?
     Route: 048
     Dates: start: 20220126, end: 20221013
  2. CELECOXIB [Suspect]
     Active Substance: CELECOXIB
     Indication: Inflammation
  3. NAPROXEN SODIUM [Suspect]
     Active Substance: NAPROXEN SODIUM
     Indication: Pain
  4. NAPROXEN SODIUM [Suspect]
     Active Substance: NAPROXEN SODIUM
     Indication: Inflammation

REACTIONS (8)
  - Syncope [None]
  - Fall [None]
  - Upper gastrointestinal haemorrhage [None]
  - Melaena [None]
  - Haemoglobin decreased [None]
  - Duodenal ulcer [None]
  - Duodenal stenosis [None]
  - Mucosal disorder [None]

NARRATIVE: CASE EVENT DATE: 20221010
